FAERS Safety Report 9411244 (Version 2)
Quarter: 2013Q3

REPORT INFORMATION
  Report Type: Spontaneous
  Country: US (occurrence: US)
  Receive Date: 20130722
  Receipt Date: 20130829
  Transmission Date: 20140515
  Serious: Yes (Hospitalization)
  Sender: FDA-Public Use
  Company Number: US-MERCK-1307USA009744

PATIENT
  Age: 62 Year
  Sex: Male

DRUGS (14)
  1. REMERON [Suspect]
     Indication: SCHIZOPHRENIA
     Route: 048
  2. CLOZAPINE [Interacting]
     Dosage: UNK
  3. ACETAMINOPHEN [Concomitant]
  4. ALBUTEROL [Concomitant]
  5. ATENOLOL [Concomitant]
  6. BENZTROPINE MESYLATE [Concomitant]
  7. BUDESONIDE [Concomitant]
  8. DOCUSATE SODIUM [Concomitant]
  9. FERROUS SULFATE [Concomitant]
  10. GEMFIBROZIL [Concomitant]
  11. GLIPIZIDE [Concomitant]
  12. LORAZEPAM [Concomitant]
  13. METFORMIN [Concomitant]
  14. OXYBUTYNIN [Concomitant]

REACTIONS (6)
  - Catatonia [Unknown]
  - Aggression [Unknown]
  - Drug interaction [Unknown]
  - Toxicity to various agents [Recovered/Resolved]
  - Confusional state [Unknown]
  - Agitation [Unknown]
